FAERS Safety Report 20089668 (Version 2)
Quarter: 2021Q4

REPORT INFORMATION
  Report Type: Spontaneous
  Country: JP (occurrence: None)
  Receive Date: 20211119
  Receipt Date: 20211215
  Transmission Date: 20220304
  Serious: Yes (Hospitalization)
  Sender: FDA-Public Use
  Company Number: 2021A808416

PATIENT
  Age: 79 Year
  Sex: Male
  Weight: 56 kg

DRUGS (7)
  1. CRESTOR [Suspect]
     Active Substance: ROSUVASTATIN CALCIUM
     Dosage: ADMINISTRATION START DATE UNKNOWN, FOR OVER 1 YEAR
     Route: 048
     Dates: end: 20190417
  2. CLOPIDOGREL [Suspect]
     Active Substance: CLOPIDOGREL BISULFATE
     Dosage: ADMINISTRATION START DATE UNKNOWN, FOR OVER 1 YEAR
     Route: 048
     Dates: end: 20190530
  3. ASPIRIN\LANSOPRAZOLE [Concomitant]
     Active Substance: ASPIRIN\LANSOPRAZOLE
     Dosage: DOSE UNKNOWN
     Route: 048
  4. CANDESARTAN [Concomitant]
     Active Substance: CANDESARTAN
     Dosage: DOSE UNKNOWN
     Route: 048
  5. CARVEDILOL [Concomitant]
     Active Substance: CARVEDILOL
     Dosage: DOSE UNKNOWN
     Route: 048
  6. AMIODARONE HYDROCHLORIDE [Concomitant]
     Active Substance: AMIODARONE HYDROCHLORIDE
     Dosage: DOSE UNKNOWN
     Route: 048
  7. AZOSEMIDE [Concomitant]
     Active Substance: AZOSEMIDE
     Dosage: DOSE UNKNOWN, FOR OVER 1 YEAR
     Route: 048

REACTIONS (6)
  - Blood creatine phosphokinase increased [Recovered/Resolved]
  - Pneumonia [Unknown]
  - Dehydration [Unknown]
  - Muscular weakness [Unknown]
  - Contusion [Unknown]
  - Fall [Unknown]

NARRATIVE: CASE EVENT DATE: 20190415
